FAERS Safety Report 8333322-2 (Version None)
Quarter: 2012Q2

REPORT INFORMATION
  Report Type: 
  Country: None (occurrence: None)
  Receive Date: 20120503
  Receipt Date: 20120423
  Transmission Date: 20120825
  Serious: Yes (Other)
  Sender: FDA-Public Use
  Company Number: US-SANOFI-AVENTIS-2012SA028502

PATIENT
  Age: 70 Year
  Sex: Female
  Weight: 68.03 kg

DRUGS (3)
  1. KENALOG [Suspect]
     Route: 065
     Dates: start: 20080724, end: 20090401
  2. PLAVIX [Suspect]
     Dates: start: 20090601, end: 20100701
  3. PLAVIX [Suspect]
     Indication: STENT PLACEMENT
     Dates: start: 20090601, end: 20100701

REACTIONS (7)
  - EXERCISE TOLERANCE DECREASED [None]
  - SKIN DISCOLOURATION [None]
  - NECK PAIN [None]
  - THYROID DISORDER [None]
  - GOITRE [None]
  - SPINAL COLUMN STENOSIS [None]
  - CONTUSION [None]
